FAERS Safety Report 8799968 (Version 1)
Quarter: 2012Q4

REPORT INFORMATION
  Report Type: Spontaneous
  Country: US (occurrence: None)
  Receive Date: 20120918
  Receipt Date: 20120918
  Transmission Date: 20130627
  Serious: Yes (Hospitalization)
  Sender: FDA-Public Use
  Company Number: None

PATIENT

DRUGS (1)
  1. LEVAQUIN [Suspect]
     Indication: DRUG THERAPY

REACTIONS (6)
  - Eye swelling [None]
  - Anxiety [None]
  - Heart rate increased [None]
  - Urticaria [None]
  - Pruritus generalised [None]
  - Flushing [None]
